FAERS Safety Report 5824048-5 (Version None)
Quarter: 2008Q3

REPORT INFORMATION
  Report Type: 
  Country: None (occurrence: None)
  Receive Date: 20080728
  Receipt Date: 20080723
  Transmission Date: 20090109
  Serious: Yes (Hospitalization, Other)
  Sender: FDA-Public Use
  Company Number: GB-RANBAXY-2008RR-13050

PATIENT

DRUGS (4)
  1. CONTIFLO XL 400 MICROGRAMS CAPSULES [Suspect]
     Dosage: 1 DF, QD
     Route: 048
     Dates: start: 20070401, end: 20070401
  2. ACETAMINOPHEN W/ CODEINE [Concomitant]
     Dosage: 2 DF, PRN
     Route: 048
  3. CODIPAR [Concomitant]
     Route: 048
  4. ACETAMINOPHEN [Concomitant]
     Route: 048

REACTIONS (2)
  - RETINAL DISORDER [None]
  - VISUAL IMPAIRMENT [None]
